FAERS Safety Report 21467402 (Version 1)
Quarter: 2022Q4

REPORT INFORMATION
  Report Type: Spontaneous
  Country: US (occurrence: US)
  Receive Date: 20221017
  Receipt Date: 20221017
  Transmission Date: 20230112
  Serious: Yes (Other)
  Sender: FDA-Public Use
  Company Number: US-TEVA-2022-US-2816086

PATIENT
  Age: 74 Year

DRUGS (2)
  1. OXALIPLATIN [Suspect]
     Active Substance: OXALIPLATIN
     Indication: Product used for unknown indication
     Dosage: STRENGTH: 5 MG/ML
     Route: 065
  2. OXALIPLATIN [Suspect]
     Active Substance: OXALIPLATIN
     Dosage: STRENGTH: 5 MG/ML
     Route: 065

REACTIONS (3)
  - Anaphylactoid reaction [Unknown]
  - Dyspnoea [Unknown]
  - Tachycardia [Unknown]
